FAERS Safety Report 20473207 (Version 26)
Quarter: 2025Q3

REPORT INFORMATION
  Report Type: Report from Study
  Country: US (occurrence: US)
  Receive Date: 20220215
  Receipt Date: 20250929
  Transmission Date: 20251021
  Serious: Yes (Life-Threatening, Hospitalization, Other)
  Sender: NOVARTIS
  Company Number: US-NOVARTISPH-NVSC2022US031692

PATIENT
  Age: 17 Month
  Sex: Male

DRUGS (5)
  1. ZOLGENSMA [Suspect]
     Active Substance: ONASEMNOGENE ABEPARVOVEC-XIOI
     Indication: Spinal muscular atrophy
     Route: 042
     Dates: start: 20201119, end: 20201119
  2. OXYCODONE [Concomitant]
     Active Substance: OXYCODONE
     Indication: Product used for unknown indication
     Route: 065
  3. TORADOL [Concomitant]
     Active Substance: KETOROLAC TROMETHAMINE
     Indication: Pain
     Dosage: 7 MG, QD
     Route: 065
     Dates: start: 20240525
  4. DIAZEPAM [Concomitant]
     Active Substance: DIAZEPAM
     Indication: Muscle spasms
     Route: 065
     Dates: start: 20240525
  5. PREDNISOLONE [Concomitant]
     Active Substance: PREDNISOLONE
     Indication: Product used for unknown indication
     Route: 065
     Dates: start: 20201118, end: 20210504

REACTIONS (27)
  - Malignant neoplasm of spinal cord [Recovered/Resolved]
  - Eating disorder [Not Recovered/Not Resolved]
  - Opisthotonus [Not Recovered/Not Resolved]
  - Back pain [Recovered/Resolved]
  - Back pain [Recovered/Resolved with Sequelae]
  - Pain in extremity [Recovered/Resolved with Sequelae]
  - Neck pain [Recovered/Resolved]
  - Incision site swelling [Recovered/Resolved]
  - Neoplasm recurrence [Recovering/Resolving]
  - Gait disturbance [Not Recovered/Not Resolved]
  - Urinary retention [Unknown]
  - Fatigue [Recovered/Resolved with Sequelae]
  - Somnolence [Recovered/Resolved with Sequelae]
  - Abdominal pain [Recovered/Resolved with Sequelae]
  - Hypophagia [Recovered/Resolved with Sequelae]
  - Pyrexia [Recovered/Resolved with Sequelae]
  - Peritonitis [Recovered/Resolved with Sequelae]
  - Neurological symptom [Recovered/Resolved with Sequelae]
  - Spinal muscular atrophy [Recovered/Resolved with Sequelae]
  - Dysstasia [Unknown]
  - Neoplasm [Unknown]
  - Aspartate aminotransferase increased [Unknown]
  - Alanine aminotransferase increased [Unknown]
  - Irritability [Unknown]
  - Post procedural persistent drain fluid [Unknown]
  - Muscular weakness [Recovered/Resolved]
  - Hypokinesia [Unknown]

NARRATIVE: CASE EVENT DATE: 20220210
